FAERS Safety Report 17159188 (Version 1)
Quarter: 2019Q4

REPORT INFORMATION
  Report Type: Spontaneous
  Country: US (occurrence: US)
  Receive Date: 20191216
  Receipt Date: 20191216
  Transmission Date: 20200122
  Serious: No
  Sender: FDA-Public Use
  Company Number: US-ENDO PHARMACEUTICALS INC-2018-043339

PATIENT
  Sex: Male
  Weight: 73.92 kg

DRUGS (4)
  1. XIAFLEX [Suspect]
     Active Substance: COLLAGENASE CLOSTRIDIUM HISTOLYTICUM
     Dosage: UNK FIRST, SECOND, THIRD, FOURTH SUCLE; FIRST PLAQUE SEVEN INJECTIONS
     Route: 026
     Dates: start: 2017
  2. XIAFLEX [Suspect]
     Active Substance: COLLAGENASE CLOSTRIDIUM HISTOLYTICUM
     Dosage: UNK FOURTH CYCLE; FIRST PLAQUE; EIGHT INJECTION
     Dates: start: 20180918
  3. XIAFLEX [Suspect]
     Active Substance: COLLAGENASE CLOSTRIDIUM HISTOLYTICUM
     Indication: PEYRONIE^S DISEASE
     Dosage: UNK FOURTH CYCLE, SECOND PLAQUE EIGHT INJECTION
     Route: 026
     Dates: start: 20180308
  4. XIAFLEX [Suspect]
     Active Substance: COLLAGENASE CLOSTRIDIUM HISTOLYTICUM
     Dosage: UNK FIRST, SECOND, THIRD,FOURTH CYCLE -SECOND PLAQUE; SEVEN INJECTIONS
     Route: 026

REACTIONS (1)
  - Drug ineffective [Not Recovered/Not Resolved]

NARRATIVE: CASE EVENT DATE: 2018
